FAERS Safety Report 7223375-7 (Version None)
Quarter: 2011Q1

REPORT INFORMATION
  Report Type: 
  Country: None (occurrence: None)
  Receive Date: 20110112
  Receipt Date: 20100527
  Transmission Date: 20110831
  Serious: No
  Sender: FDA-Public Use
  Company Number: US-ALLERGAN-1006975US

PATIENT
  Age: 76 Year
  Sex: Male

DRUGS (4)
  1. RESTASIS [Suspect]
     Indication: DRY EYE
     Dosage: 1 GTT, BID
     Dates: start: 20100201
  2. METFORMIN [Concomitant]
  3. FLOMAX [Concomitant]
  4. AMLODIPINE [Concomitant]

REACTIONS (1)
  - DRUG INEFFECTIVE [None]
